FAERS Safety Report 6754391-7 (Version None)
Quarter: 2010Q2

REPORT INFORMATION
  Report Type: 
  Country: None (occurrence: None)
  Receive Date: 20100601
  Receipt Date: 20100515
  Transmission Date: 20101027
  Serious: Yes (Hospitalization)
  Sender: FDA-Public Use
  Company Number: 2010001926

PATIENT
  Age: 44 Year
  Sex: Female

DRUGS (1)
  1. TARCEVA [Suspect]
     Indication: DRUG USE FOR UNKNOWN INDICATION
     Dosage: (150 MG, QD), ORAL
     Route: 048
     Dates: start: 20071004, end: 20100401

REACTIONS (1)
  - ACQUIRED EPIDERMOLYSIS BULLOSA [None]
